FAERS Safety Report 11540324 (Version 1)
Quarter: 2015Q3

REPORT INFORMATION
  Report Type: Spontaneous
  Country: US (occurrence: US)
  Receive Date: 20150923
  Receipt Date: 20150923
  Transmission Date: 20151125
  Serious: No
  Sender: FDA-Public Use
  Company Number: US-BEH-2014043592

PATIENT
  Sex: Female
  Weight: 56 kg

DRUGS (34)
  1. SODIUM CHLORIDE. [Concomitant]
     Active Substance: SODIUM CHLORIDE
  2. EPIPEN [Concomitant]
     Active Substance: EPINEPHRINE
  3. CLARITHROMYCIN. [Concomitant]
     Active Substance: CLARITHROMYCIN
  4. PROGESTERONE. [Concomitant]
     Active Substance: PROGESTERONE
  5. SERTRALINE [Concomitant]
     Active Substance: SERTRALINE HYDROCHLORIDE
  6. LIDOCAINE. [Concomitant]
     Active Substance: LIDOCAINE
  7. MIRALAX [Concomitant]
     Active Substance: POLYETHYLENE GLYCOL 3350
  8. LIDODERM [Concomitant]
     Active Substance: LIDOCAINE
  9. ENDOCET [Concomitant]
     Active Substance: ACETAMINOPHEN\OXYCODONE HYDROCHLORIDE
  10. PROBIOTIC [Concomitant]
     Active Substance: PROBIOTICS NOS
  11. PRIVIGEN [Suspect]
     Active Substance: HUMAN IMMUNOGLOBULIN G
     Dosage: INFUSE OVER 2-6 HOURS
     Route: 042
  12. SYNTHROID [Concomitant]
     Active Substance: LEVOTHYROXINE SODIUM
  13. PRIVIGEN [Suspect]
     Active Substance: HUMAN IMMUNOGLOBULIN G
     Dosage: INFUSE OVER 2-6 HOURS
     Route: 042
  14. VICKS DAYQUIL [Concomitant]
     Active Substance: DEXTROMETHORPHAN HYDROBROMIDE\GUAIFENESIN
  15. ALL OTHER THERAPEUTIC PRODUCTS [Concomitant]
     Active Substance: UNSPECIFIED INGREDIENT
  16. ALL OTHER NON-THERAPEUTIC PRODUCTS [Concomitant]
     Active Substance: UNSPECIFIED INGREDIENT
  17. ALL OTHER THERAPEUTIC PRODUCTS [Concomitant]
     Active Substance: UNSPECIFIED INGREDIENT
  18. VALIUM [Concomitant]
     Active Substance: DIAZEPAM
  19. XANAX [Concomitant]
     Active Substance: ALPRAZOLAM
  20. RESTORIL [Concomitant]
     Active Substance: TEMAZEPAM
  21. ALGAECAL [Concomitant]
  22. PROMETHAZINE [Concomitant]
     Active Substance: PROMETHAZINE\PROMETHAZINE HYDROCHLORIDE
  23. MACROBID [Concomitant]
     Active Substance: NITROFURANTOIN\NITROFURANTOIN MONOHYDRATE
  24. VITAMIN D3 [Concomitant]
     Active Substance: CHOLECALCIFEROL
  25. IBUPROFEN. [Concomitant]
     Active Substance: IBUPROFEN
  26. BACLOFEN. [Concomitant]
     Active Substance: BACLOFEN
  27. ESTRACE [Concomitant]
     Active Substance: ESTRADIOL
  28. CYANOCOBALAMIN. [Concomitant]
     Active Substance: CYANOCOBALAMIN
  29. PRIVIGEN [Suspect]
     Active Substance: HUMAN IMMUNOGLOBULIN G
     Indication: IMMUNODEFICIENCY COMMON VARIABLE
     Route: 042
  30. DIPHENHYDRAMINE. [Concomitant]
     Active Substance: DIPHENHYDRAMINE
  31. LMX [Concomitant]
     Active Substance: LIDOCAINE
  32. STRONTIUM [Concomitant]
     Active Substance: STRONTIUM
  33. SUDAFED [Concomitant]
     Active Substance: PSEUDOEPHEDRINE HYDROCHLORIDE
  34. MELATONIN [Concomitant]
     Active Substance: MELATONIN

REACTIONS (2)
  - Fungal infection [Unknown]
  - Urinary tract infection [Unknown]
